FAERS Safety Report 23123508 (Version 1)
Quarter: 2023Q4

REPORT INFORMATION
  Report Type: Spontaneous
  Country: US (occurrence: US)
  Receive Date: 20231030
  Receipt Date: 20231030
  Transmission Date: 20240110
  Serious: Yes (Hospitalization)
  Sender: FDA-Public Use
  Company Number: US-MYLANLABS-2023M1113775

PATIENT
  Age: 59 Year
  Sex: Male

DRUGS (4)
  1. MESALAMINE [Suspect]
     Active Substance: MESALAMINE
     Indication: Crohn^s disease
     Dosage: UNK
     Route: 065
  2. AZATHIOPRINE [Suspect]
     Active Substance: AZATHIOPRINE
     Indication: Crohn^s disease
     Dosage: UNK
     Route: 065
  3. AZITHROMYCIN [Concomitant]
     Active Substance: AZITHROMYCIN
     Indication: Bronchitis
     Dosage: UNK
     Route: 065
  4. CLINDAMYCIN [Concomitant]
     Active Substance: CLINDAMYCIN
     Indication: Tooth abscess
     Dosage: UNK
     Route: 065

REACTIONS (6)
  - Diffuse large B-cell lymphoma [Unknown]
  - Epstein-Barr virus infection [Unknown]
  - Stenotrophomonas infection [Unknown]
  - Acinetobacter infection [Unknown]
  - Pneumonia [Unknown]
  - Fungal infection [Unknown]
